FAERS Safety Report 22674791 (Version 5)
Quarter: 2024Q2

REPORT INFORMATION
  Report Type: Report from Study
  Country: CH (occurrence: CH)
  Receive Date: 20230705
  Receipt Date: 20240411
  Transmission Date: 20240716
  Serious: Yes (Other)
  Sender: FDA-Public Use
  Company Number: CH-ABBVIE-21K-151-3800768-00

PATIENT
  Age: 63 Year
  Sex: Female

DRUGS (11)
  1. CARBIDOPA\LEVODOPA [Suspect]
     Active Substance: CARBIDOPA\LEVODOPA
     Indication: Parkinson^s disease
     Route: 050
     Dates: start: 20190808
  2. CARBIDOPA\LEVODOPA [Suspect]
     Active Substance: CARBIDOPA\LEVODOPA
     Dosage: MD 5.5 ML, CRD 3.9 ML/H, CRN 2.6 ML/H, ED 1.5 ML
     Route: 050
     Dates: start: 20230126, end: 20230619
  3. CARBIDOPA\LEVODOPA [Suspect]
     Active Substance: CARBIDOPA\LEVODOPA
     Dosage: MD 5.5 ML, CRD 3.7 ML/H, CRN 2.6 ML/H, ED 1.5 ML
     Route: 050
     Dates: start: 20230619, end: 20230720
  4. CARBIDOPA\LEVODOPA [Suspect]
     Active Substance: CARBIDOPA\LEVODOPA
     Route: 050
     Dates: start: 20200115, end: 20201013
  5. CARBIDOPA\LEVODOPA [Suspect]
     Active Substance: CARBIDOPA\LEVODOPA
     Dosage: MD 5 ML, CRD 3.9 ML/H, CRN 2.7 ML/H, ED 1.5 ML
     Route: 050
     Dates: start: 20240326
  6. CARBIDOPA\LEVODOPA [Suspect]
     Active Substance: CARBIDOPA\LEVODOPA
     Route: 050
     Dates: start: 20201013, end: 20210224
  7. CARBIDOPA\LEVODOPA [Suspect]
     Active Substance: CARBIDOPA\LEVODOPA
     Dosage: MD 5.5ML, CRD 3.6ML/H, CRN 2.0ML/H, ED 1.5ML
     Route: 050
     Dates: start: 20210224, end: 20210802
  8. CARBIDOPA\LEVODOPA [Suspect]
     Active Substance: CARBIDOPA\LEVODOPA
     Dosage: MD 5.5ML, CRD 3.8 ML/H, CRN 2.3 ML/H, ED 1.5ML
     Route: 050
     Dates: start: 20210802, end: 20211111
  9. CARBIDOPA\LEVODOPA [Suspect]
     Active Substance: CARBIDOPA\LEVODOPA
     Route: 050
     Dates: start: 20211111, end: 20220217
  10. CARBIDOPA\LEVODOPA [Suspect]
     Active Substance: CARBIDOPA\LEVODOPA
     Dosage: MD 5.0 ML, CRD 3.8 ML/H, CRN 2.5 ML/H, ED 1.5 ML
     Route: 050
     Dates: start: 20220217
  11. CARBIDOPA\LEVODOPA [Suspect]
     Active Substance: CARBIDOPA\LEVODOPA
     Dosage: MD 5.5 ML, CRD 3.7 ML/H, CRN 2.7 ML/H, ED 1.5 ML
     Route: 050
     Dates: start: 20230720, end: 20240326

REACTIONS (28)
  - Cholecystectomy [Unknown]
  - Depression [Unknown]
  - Sleep disorder [Recovered/Resolved]
  - Akinesia [Recovering/Resolving]
  - Bradykinesia [Not Recovered/Not Resolved]
  - Stoma site hypergranulation [Recovered/Resolved]
  - Reduced facial expression [Not Recovered/Not Resolved]
  - Stoma site discharge [Recovering/Resolving]
  - Device leakage [Recovered/Resolved]
  - Gastrointestinal disorder [Unknown]
  - Constipation [Not Recovered/Not Resolved]
  - Stoma site reaction [Unknown]
  - Device alarm issue [Recovered/Resolved]
  - Dysdiadochokinesis [Not Recovered/Not Resolved]
  - Dyskinesia [Recovering/Resolving]
  - Skin irritation [Recovering/Resolving]
  - Hyperkinesia [Not Recovered/Not Resolved]
  - Loss of personal independence in daily activities [Unknown]
  - Movement disorder [Recovering/Resolving]
  - Device physical property issue [Recovered/Resolved]
  - Stoma site pain [Not Recovered/Not Resolved]
  - Hypercholesterolaemia [Unknown]
  - Stoma site inflammation [Recovering/Resolving]
  - On and off phenomenon [Unknown]
  - Hypertension [Unknown]
  - Unevaluable event [Unknown]
  - Freezing phenomenon [Recovering/Resolving]
  - Joint range of motion decreased [Not Recovered/Not Resolved]

NARRATIVE: CASE EVENT DATE: 20210201
